FAERS Safety Report 25051862 (Version 1)
Quarter: 2025Q1

REPORT INFORMATION
  Report Type: Report from Study
  Country: US (occurrence: US)
  Receive Date: 20250307
  Receipt Date: 20250307
  Transmission Date: 20250408
  Serious: Yes (Congenital Anomaly)
  Sender: ABBVIE
  Company Number: US-ABBVIE-20K-163-3703490-00

PATIENT
  Age: 35 Year
  Sex: Female

DRUGS (3)
  1. HUMIRA [Suspect]
     Active Substance: ADALIMUMAB
     Indication: Hidradenitis
     Dosage: CITRATE FREE
     Route: 058
     Dates: start: 2020, end: 2020
  2. VICTOZA [Suspect]
     Active Substance: LIRAGLUTIDE
     Indication: Product used for unknown indication
     Route: 065
  3. XOLAIR [Suspect]
     Active Substance: OMALIZUMAB
     Indication: Product used for unknown indication
     Route: 065

REACTIONS (17)
  - Ehlers-Danlos syndrome [Not Recovered/Not Resolved]
  - Reaction to preservatives [Recovered/Resolved]
  - Hair growth abnormal [Recovering/Resolving]
  - Asthma [Not Recovered/Not Resolved]
  - Swelling face [Recovered/Resolved]
  - Hidradenitis [Not Recovered/Not Resolved]
  - Neuropathy peripheral [Recovering/Resolving]
  - Drug hypersensitivity [Recovered/Resolved]
  - Urticaria [Recovering/Resolving]
  - Primary immunodeficiency syndrome [Not Recovered/Not Resolved]
  - Alopecia [Recovering/Resolving]
  - Mast cell activation syndrome [Not Recovered/Not Resolved]
  - Paraesthesia [Recovering/Resolving]
  - COVID-19 [Recovered/Resolved with Sequelae]
  - Swelling face [Recovered/Resolved]
  - Throat tightness [Recovered/Resolved]
  - Eye swelling [Recovered/Resolved]

NARRATIVE: CASE EVENT DATE: 20200101
